FAERS Safety Report 6195642-X (Version None)
Quarter: 2009Q2

REPORT INFORMATION
  Report Type: 
  Country: None (occurrence: None)
  Receive Date: 20090519
  Receipt Date: 20090410
  Transmission Date: 20091009
  Serious: Yes (Hospitalization)
  Sender: FDA-Public Use
  Company Number: JP-ABBOTT-09P-087-0568254-00

PATIENT
  Sex: Male
  Weight: 48 kg

DRUGS (13)
  1. CLARITHROMYCIN [Suspect]
     Indication: RESPIRATORY DISORDER
     Route: 048
     Dates: start: 20090316, end: 20090324
  2. HOKUNALIN [Suspect]
     Indication: RESPIRATORY DISORDER
     Route: 061
     Dates: start: 20090316, end: 20090324
  3. CLEANAL [Suspect]
     Indication: RESPIRATORY DISORDER
     Route: 048
     Dates: start: 20090316, end: 20090324
  4. MUCODYNE [Suspect]
     Indication: RESPIRATORY DISORDER
     Route: 048
     Dates: start: 20090316, end: 20090324
  5. KIPRES [Suspect]
     Indication: RESPIRATORY DISORDER
     Route: 048
     Dates: start: 20090316, end: 20090324
  6. SEREVENT [Suspect]
     Indication: RESPIRATORY DISORDER
     Route: 055
     Dates: start: 20090316, end: 20090324
  7. MARZULENE S [Suspect]
     Indication: RESPIRATORY DISORDER
     Route: 048
     Dates: start: 20090316, end: 20090324
  8. CLEANAL [Concomitant]
     Route: 048
     Dates: start: 20090318, end: 20090324
  9. MUCODYNE [Concomitant]
     Route: 048
     Dates: start: 20090316, end: 20090324
  10. KIPRES [Concomitant]
     Route: 048
     Dates: start: 20090316, end: 20090324
  11. SEREVENT [Concomitant]
     Route: 055
     Dates: start: 20090316, end: 20090324
  12. HOKUNALIN [Concomitant]
     Route: 061
     Dates: start: 20090316, end: 20090324
  13. MARZULENE S [Concomitant]
     Route: 048
     Dates: start: 20090316, end: 20090324

REACTIONS (1)
  - HEPATIC FUNCTION ABNORMAL [None]
